FAERS Safety Report 6568524-9 (Version None)
Quarter: 2010Q1

REPORT INFORMATION
  Report Type: 
  Country: None (occurrence: None)
  Receive Date: 20100127
  Receipt Date: 20100119
  Transmission Date: 20100710
  Serious: Yes (Death)
  Sender: FDA-Public Use
  Company Number: PERL20100001

PATIENT
  Age: 45 Year
  Sex: Female

DRUGS (7)
  1. PERCOLONE (OXYCODONE) [Suspect]
     Indication: DRUG USE FOR UNKNOWN INDICATION
  2. CODEINE SUL TAB [Suspect]
     Indication: DRUG USE FOR UNKNOWN INDICATION
  3. MORPHINE [Suspect]
     Indication: DRUG USE FOR UNKNOWN INDICATION
  4. TEMAZEPAM [Suspect]
     Indication: DRUG USE FOR UNKNOWN INDICATION
  5. AMITRIPTYLINE HYDROCHLORIDE [Suspect]
     Indication: DRUG USE FOR UNKNOWN INDICATION
  6. TRAMADOL HCL [Suspect]
     Indication: DRUG USE FOR UNKNOWN INDICATION
  7. PARACETAMOL (PARACETAMOL) (PARACETAMOL) [Concomitant]

REACTIONS (1)
  - DRUG TOXICITY [None]
